FAERS Safety Report 14128044 (Version 1)
Quarter: 2017Q4

REPORT INFORMATION
  Report Type: Spontaneous
  Country: US (occurrence: None)
  Receive Date: 20171025
  Receipt Date: 20171025
  Transmission Date: 20180321
  Serious: No
  Sender: FDA-Public Use
  Company Number: None

PATIENT
  Age: 33 Year
  Sex: Female

DRUGS (1)
  1. MAKENA [Suspect]
     Active Substance: HYDROXYPROGESTERONE CAPROATE
     Dosage: 250MG WEEKLY IM
     Route: 030

REACTIONS (3)
  - Oedema peripheral [None]
  - Drug dose omission [None]
  - Product deposit [None]

NARRATIVE: CASE EVENT DATE: 20171025
